FAERS Safety Report 7486700-8 (Version None)
Quarter: 2011Q2

REPORT INFORMATION
  Report Type: 
  Country: None (occurrence: None)
  Receive Date: 20110517
  Receipt Date: 20100407
  Transmission Date: 20111010
  Serious: No
  Sender: FDA-Public Use
  Company Number: US-NOVEN-ALL1-2010-03163

PATIENT

DRUGS (3)
  1. DAYTRANA [Suspect]
     Dosage: 20 MG, 1X/DAY:QD
     Route: 062
  2. DAYTRANA [Suspect]
     Dosage: 30 MG, 1X/DAY:QD
     Route: 062
  3. DAYTRANA [Suspect]
     Dosage: 20 MG, 1X/DAY:QD
     Route: 062

REACTIONS (8)
  - TIC [None]
  - VISION BLURRED [None]
  - INSOMNIA [None]
  - PARALYSIS [None]
  - SPEECH DISORDER [None]
  - DECREASED APPETITE [None]
  - HEADACHE [None]
  - ABDOMINAL PAIN UPPER [None]
